FAERS Safety Report 11064286 (Version 1)
Quarter: 2015Q2

REPORT INFORMATION
  Report Type: Spontaneous
  Country: JP (occurrence: JP)
  Receive Date: 20150424
  Receipt Date: 20150424
  Transmission Date: 20150821
  Serious: Yes (Death)
  Sender: FDA-Public Use
  Company Number: JP-MALLINCKRODT-T201502146

PATIENT
  Age: 54 Year
  Sex: Female
  Weight: 34 kg

DRUGS (16)
  1. DECADRON [Concomitant]
     Active Substance: DEXAMETHASONE
     Dosage: 2MG
     Route: 048
     Dates: end: 20150117
  2. MUCODYNE [Concomitant]
     Active Substance: CARBOCYSTEINE
     Dosage: 750MG
     Route: 048
     Dates: end: 20150117
  3. OXINORM [Concomitant]
     Active Substance: OXYCODONE HYDROCHLORIDE
     Dosage: 20MG, P.R.N.
     Route: 048
     Dates: start: 20141227
  4. PRIMPERAN [Concomitant]
     Active Substance: METOCLOPRAMIDE HYDROCHLORIDE
     Dosage: 5MG
     Route: 048
     Dates: end: 20150117
  5. MORPHINE HYDROCHLORIDE [Concomitant]
     Active Substance: MORPHINE HYDROCHLORIDE
     Dosage: 48MG
     Route: 051
     Dates: end: 20141226
  6. TAKEPRON [Concomitant]
     Active Substance: LANSOPRAZOLE
     Dosage: 15MG
     Route: 048
     Dates: end: 20150117
  7. P GUARD [Concomitant]
     Active Substance: MORPHINE SULFATE
     Dosage: 110MG
     Route: 048
     Dates: start: 20150106, end: 20150117
  8. MORPHINE HYDROCHLORIDE [Concomitant]
     Active Substance: MORPHINE HYDROCHLORIDE
     Dosage: 48MG
     Route: 051
     Dates: start: 20150117, end: 20150118
  9. MORPHINE HYDROCHLORIDE [Concomitant]
     Active Substance: MORPHINE HYDROCHLORIDE
     Dosage: 1MG, P.R.N.
     Route: 051
     Dates: start: 20141222, end: 20141227
  10. VFEND [Concomitant]
     Active Substance: VORICONAZOLE
     Dosage: 175MG
     Route: 048
     Dates: end: 20150117
  11. OXINORM [Concomitant]
     Active Substance: OXYCODONE HYDROCHLORIDE
     Dosage: 20MG, P.R.N.
     Route: 048
     Dates: start: 20141221, end: 20141221
  12. METHADONE [Suspect]
     Active Substance: METHADONE HYDROCHLORIDE
     Dosage: 10 MG, (30 MG DAILY DOSE)
     Route: 048
     Dates: start: 20150106, end: 20150117
  13. P GUARD [Concomitant]
     Active Substance: MORPHINE SULFATE
     Dosage: 150MG
     Route: 048
     Dates: start: 20141226, end: 20150105
  14. MAGNESIUM OXIDE. [Concomitant]
     Active Substance: MAGNESIUM OXIDE
     Dosage: 330MG
     Route: 048
     Dates: end: 20150117
  15. METHADONE [Suspect]
     Active Substance: METHADONE HYDROCHLORIDE
     Indication: CANCER PAIN
     Dosage: 5 MG, (15 MG DAILY DOSE)
     Route: 048
     Dates: start: 20141222, end: 20150105
  16. MORPHINE HYDROCHLORIDE [Concomitant]
     Active Substance: MORPHINE HYDROCHLORIDE
     Dosage: 1MG, P.R.N.
     Route: 051
     Dates: start: 20150117, end: 20150118

REACTIONS (1)
  - Ovarian cancer [Fatal]
